FAERS Safety Report 6441911-5 (Version None)
Quarter: 2009Q4

REPORT INFORMATION
  Report Type: 
  Country: None (occurrence: None)
  Receive Date: 20091116
  Receipt Date: 20091102
  Transmission Date: 20100525
  Serious: Yes (Hospitalization, Other)
  Sender: FDA-Public Use
  Company Number: PT-MYLANLABS-2009S1019007

PATIENT
  Sex: Male

DRUGS (16)
  1. DIDANOSINE [Suspect]
     Indication: HIV INFECTION
     Dates: start: 19970122
  2. INDINAVIR [Suspect]
     Indication: HIV INFECTION
     Dates: start: 19970401
  3. STAVUDINE [Suspect]
     Indication: HIV INFECTION
  4. LAMIVUDINE [Suspect]
     Indication: HIV INFECTION
  5. NELFINAVIR MESYLATE [Suspect]
     Indication: HIV INFECTION
  6. NEVIRAPINE [Suspect]
     Indication: HIV INFECTION
     Dates: start: 20011001
  7. TENOFOVIR DISOPROXIL FUMARATE [Suspect]
     Indication: HIV INFECTION
  8. EFAVIRENZ [Suspect]
     Indication: HIV INFECTION
     Dates: start: 20030201
  9. KALETRA                            /01506501/ [Suspect]
     Indication: HIV INFECTION
     Dates: start: 20030201
  10. ABACAVIR [Suspect]
     Indication: HIV INFECTION
     Dates: start: 20051101
  11. TIPRANAVIR [Suspect]
     Indication: HIV INFECTION
     Dates: start: 20051101
  12. RITONAVIR [Suspect]
     Indication: HIV INFECTION
     Dates: start: 20051101
  13. ASPIRIN [Concomitant]
  14. CLOPIDOGREL [Concomitant]
  15. SIMAVASTATIN [Concomitant]
  16. ATENOLOL [Concomitant]

REACTIONS (3)
  - DYSLIPIDAEMIA [None]
  - LIPODYSTROPHY ACQUIRED [None]
  - MYOCARDIAL INFARCTION [None]
